FAERS Safety Report 19431548 (Version 1)
Quarter: 2021Q2

REPORT INFORMATION
  Report Type: Spontaneous
  Country: US (occurrence: US)
  Receive Date: 20210618
  Receipt Date: 20210618
  Transmission Date: 20210717
  Serious: Yes (Hospitalization, Other)
  Sender: FDA-Public Use
  Company Number: US-AUROBINDO-AUR-APL-2021-024918

PATIENT
  Age: 19 Year
  Sex: Male

DRUGS (1)
  1. IBUPROFEN 200 MG TABLETS USP (OTC) [Suspect]
     Active Substance: IBUPROFEN
     Indication: PRODUCT USED FOR UNKNOWN INDICATION
     Dosage: 450 DOSAGE FORM
     Route: 048

REACTIONS (10)
  - Muscle twitching [Unknown]
  - Polyuria [Unknown]
  - Electrocardiogram QT prolonged [Unknown]
  - Tachycardia [Recovering/Resolving]
  - Metabolic acidosis [Unknown]
  - Overdose [Unknown]
  - Mental status changes [Recovering/Resolving]
  - Coma [Unknown]
  - Sinus tachycardia [Recovering/Resolving]
  - Depressed level of consciousness [Unknown]
